FAERS Safety Report 8505696-0 (Version None)
Quarter: 2012Q3

REPORT INFORMATION
  Report Type: 
  Country: None (occurrence: None)
  Receive Date: 20120712
  Receipt Date: 20120705
  Transmission Date: 20120928
  Serious: Yes (Hospitalization)
  Sender: FDA-Public Use
  Company Number: US-NOVOPROD-353838

PATIENT
  Age: 59 Year
  Sex: Male
  Weight: 138 kg

DRUGS (1)
  1. VICTOZA [Suspect]
     Indication: TYPE 2 DIABETES MELLITUS
     Dosage: 1.8 MG, QD
     Route: 058
     Dates: start: 20120224, end: 20120605

REACTIONS (2)
  - ACUTE MYOCARDIAL INFARCTION [None]
  - CORONARY ARTERY STENOSIS [None]
